FAERS Safety Report 26058386 (Version 3)
Quarter: 2025Q4

REPORT INFORMATION
  Report Type: Spontaneous
  Country: GB (occurrence: GB)
  Receive Date: 20251118
  Receipt Date: 20251221
  Transmission Date: 20260117
  Serious: Yes (Hospitalization, Disabling)
  Sender: ACCORD
  Company Number: GB-Accord-513467

PATIENT
  Age: 86 Year
  Sex: Female

DRUGS (14)
  1. FLUOROURACIL [Suspect]
     Active Substance: FLUOROURACIL
     Indication: Adenocarcinoma gastric stage IV
     Dosage: FOLFOX AT 75% WITHOUT A 5-FU BOLUS FROM CYCLE 5
     Dates: start: 202503, end: 202506
  2. OXALIPLATIN [Suspect]
     Active Substance: OXALIPLATIN
     Indication: Adenocarcinoma gastric stage IV
     Dosage: 75% DOSE (CYCLE 5 AND CYCLE 6)
     Dates: start: 202503, end: 202506
  3. LEUCOVORIN [Suspect]
     Active Substance: LEUCOVORIN\LEUCOVORIN CALCIUM
     Indication: Adenocarcinoma gastric stage IV
     Dosage: 75% DOSE (CYCLE 5 AND CYCLE 6)
     Dates: start: 202503, end: 202506
  4. AMLODIPINE [Concomitant]
     Active Substance: AMLODIPINE BESYLATE
  5. BECLOMETHASONE DIPROPIONATE [Concomitant]
     Active Substance: BECLOMETHASONE DIPROPIONATE
  6. DEXAMETHASONE [Concomitant]
     Active Substance: DEXAMETHASONE
  7. DIHYDROCODEINE [Concomitant]
     Active Substance: DIHYDROCODEINE
  8. NITROFURANTOIN [Concomitant]
     Active Substance: NITROFURANTOIN
     Indication: Urinary tract infection
     Dates: start: 2025
  9. OMEPRAZOLE [Concomitant]
     Active Substance: OMEPRAZOLE
  10. MORPHINE SULFATE [Concomitant]
     Active Substance: MORPHINE SULFATE
  11. SENNA [Concomitant]
     Active Substance: SENNOSIDES
  12. TINZAPARIN [Concomitant]
     Active Substance: TINZAPARIN
     Indication: Pulmonary embolism
  13. OXALIPLATIN [Suspect]
     Active Substance: OXALIPLATIN
     Indication: Adenocarcinoma gastric stage IV
     Dosage: UNK, DOSE REDUCED
     Dates: start: 2025
  14. FLUOROURACIL [Suspect]
     Active Substance: FLUOROURACIL
     Indication: Adenocarcinoma gastric stage IV
     Dosage: UNK, DOSE REDUCED
     Dates: start: 2025

REACTIONS (5)
  - Oral candidiasis [Unknown]
  - Oesophageal candidiasis [Unknown]
  - Weight decreased [Unknown]
  - Off label use [Unknown]
  - Decreased appetite [Unknown]

NARRATIVE: CASE EVENT DATE: 20250301
